FAERS Safety Report 8851642 (Version 2)
Quarter: 2013Q1

REPORT INFORMATION
  Report Type: Report from Study
  Country: PL (occurrence: PL)
  Receive Date: 20121022
  Receipt Date: 20130118
  Transmission Date: 20140127
  Serious: Yes (Hospitalization)
  Sender: FDA-Public Use
  Company Number: PL-UCBSA-018069

PATIENT
  Age: 55 Year
  Sex: Female
  Weight: 94.5 kg

DRUGS (3)
  1. CERTOLIZUMAB PEGOL [Suspect]
     Indication: RHEUMATOID ARTHRITIS
     Dosage: NBR OF DOSES: 11
     Route: 058
     Dates: start: 20100331, end: 20101019
  2. TREXAN [Concomitant]
     Indication: RHEUMATOID ARTHRITIS
     Route: 048
     Dates: start: 20081204, end: 20100901
  3. ACIDUM FOLICUM [Concomitant]
     Indication: SUPPLEMENTATION THERAPY
     Route: 048
     Dates: start: 20061222, end: 20100901

REACTIONS (2)
  - Adenoidal hypertrophy [Not Recovered/Not Resolved]
  - Nasopharyngitis [Not Recovered/Not Resolved]
